FAERS Safety Report 11515198 (Version 1)
Quarter: 2015Q3

REPORT INFORMATION
  Report Type: Spontaneous
  Country: US (occurrence: US)
  Receive Date: 20150916
  Receipt Date: 20150916
  Transmission Date: 20151125
  Serious: Yes (Other)
  Sender: FDA-Public Use
  Company Number: US-SA-2015SA137998

PATIENT
  Age: 65 Year
  Sex: Female

DRUGS (2)
  1. LANTUS SOLOSTAR [Suspect]
     Active Substance: INSULIN GLARGINE
     Indication: TYPE 2 DIABETES MELLITUS
     Dosage: DOSE:29 UNIT(S)
     Route: 065
     Dates: start: 201504
  2. SOLOSTAR [Concomitant]
     Active Substance: DEVICE
     Indication: TYPE 2 DIABETES MELLITUS
     Dates: start: 201504

REACTIONS (5)
  - Visual impairment [Unknown]
  - Ankle fracture [Unknown]
  - Head injury [Unknown]
  - Drug administration error [Unknown]
  - Ligament sprain [Unknown]

NARRATIVE: CASE EVENT DATE: 2015
